FAERS Safety Report 25164553 (Version 3)
Quarter: 2025Q2

REPORT INFORMATION
  Report Type: Spontaneous
  Country: US (occurrence: US)
  Receive Date: 20250406
  Receipt Date: 20250502
  Transmission Date: 20250717
  Serious: No
  Sender: GSK
  Company Number: US-GSK-US2025038415

PATIENT
  Sex: Female

DRUGS (1)
  1. NUCALA [Suspect]
     Active Substance: MEPOLIZUMAB
     Indication: Asthma
     Dosage: 100 MG/ML, Q4W
     Route: 058

REACTIONS (8)
  - Illness [Not Recovered/Not Resolved]
  - Lung disorder [Unknown]
  - Oropharyngeal pain [Unknown]
  - Cough [Unknown]
  - Neoplasm [Unknown]
  - Pain [Unknown]
  - Haemoglobin decreased [Unknown]
  - Product dose omission issue [Unknown]
